FAERS Safety Report 11636070 (Version 1)
Quarter: 2015Q4

REPORT INFORMATION
  Report Type: Report from Study
  Country: None (occurrence: DK)
  Receive Date: 20151016
  Receipt Date: 20151016
  Transmission Date: 20160304
  Serious: Yes (Death)
  Sender: FDA-Public Use
  Company Number: DK-TEVA-600001ACC

PATIENT
  Age: 38 Year
  Sex: Male
  Weight: 91 kg

DRUGS (6)
  1. QUETIAPINE FUMARATE. [Suspect]
     Active Substance: QUETIAPINE FUMARATE
     Route: 048
  2. OXYCODONE [Suspect]
     Active Substance: OXYCODONE
     Route: 065
  3. ETHANOL [Concomitant]
     Active Substance: ALCOHOL
     Dosage: 0.33 G/KG
  4. OXYMORPHONE [Concomitant]
     Active Substance: OXYMORPHONE
  5. CLOBAZAM [Concomitant]
     Active Substance: CLOBAZAM
  6. ZOPICLONE [Concomitant]
     Active Substance: ZOPICLONE

REACTIONS (1)
  - Toxicity to various agents [Fatal]
